FAERS Safety Report 12231462 (Version 3)
Quarter: 2016Q2

REPORT INFORMATION
  Report Type: Spontaneous
  Country: US (occurrence: US)
  Receive Date: 20160401
  Receipt Date: 20160630
  Transmission Date: 20160815
  Serious: Yes (Disabling)
  Sender: FDA-Public Use
  Company Number: US-SA-2016SA064268

PATIENT
  Age: 76 Year
  Sex: Female
  Weight: 125 kg

DRUGS (15)
  1. POTASSIUM CHLORIDE. [Concomitant]
     Active Substance: POTASSIUM CHLORIDE
     Indication: CARDIAC DISORDER
  2. SOLOSTAR [Concomitant]
     Active Substance: DEVICE
     Dates: start: 1994
  3. PRAVASTATIN [Concomitant]
     Active Substance: PRAVASTATIN\PRAVASTATIN SODIUM
     Indication: BLOOD CHOLESTEROL
     Dates: start: 199201
  4. HUMALOG [Concomitant]
     Active Substance: INSULIN LISPRO
     Indication: DIABETES MELLITUS
     Dosage: DOSE FROM 6 TO 25?FREQUNECY: 3-4 TIMES DAILY
     Dates: start: 199201
  5. ACEBUTOLOL [Concomitant]
     Active Substance: ACEBUTOLOL
     Indication: BLOOD PRESSURE MEASUREMENT
     Dates: start: 199201
  6. NIACIN. [Concomitant]
     Active Substance: NIACIN
  7. TRAMADOL HYDROCHLORIDE. [Concomitant]
     Active Substance: TRAMADOL HYDROCHLORIDE
     Indication: PAIN
     Dosage: 50MG TABLET?DOSE: 4-6 DAILY
  8. GABAPENTIN. [Concomitant]
     Active Substance: GABAPENTIN
     Indication: NEURITIS
     Dosage: 300MG?DOSE: 4-6 DAILY
  9. VITAMINS [Concomitant]
     Active Substance: VITAMINS
  10. LANTUS SOLOSTAR [Suspect]
     Active Substance: INSULIN GLARGINE
     Indication: TYPE 1 DIABETES MELLITUS
     Dosage: DOSE:22 UNIT(S)
     Route: 065
     Dates: start: 1995, end: 2014
  11. LANTUS SOLOSTAR [Suspect]
     Active Substance: INSULIN GLARGINE
     Indication: TYPE 1 DIABETES MELLITUS
     Route: 065
  12. LISINOPRIL. [Concomitant]
     Active Substance: LISINOPRIL
     Indication: BLOOD PRESSURE MEASUREMENT
     Dates: start: 199201
  13. ASPIRIN. [Concomitant]
     Active Substance: ASPIRIN
     Indication: CARDIAC DISORDER
  14. CALCIUM [Concomitant]
     Active Substance: CALCIUM
  15. POTASSIUM [Concomitant]
     Active Substance: POTASSIUM

REACTIONS (2)
  - Blood glucose abnormal [Not Recovered/Not Resolved]
  - Disability [Unknown]
